FAERS Safety Report 25676184 (Version 1)
Quarter: 2025Q3

REPORT INFORMATION
  Report Type: Spontaneous
  Country: US (occurrence: US)
  Receive Date: 20250813
  Receipt Date: 20250813
  Transmission Date: 20251021
  Serious: No
  Sender: ANI
  Company Number: US-ANIPHARMA-2025-US-015408

PATIENT
  Age: 74 Year
  Sex: Female

DRUGS (7)
  1. ANASTROZOLE [Suspect]
     Active Substance: ANASTROZOLE
     Indication: Breast cancer
  2. XELJANZ [Suspect]
     Active Substance: TOFACITINIB CITRATE
  3. LOSARTAN [Concomitant]
     Active Substance: LOSARTAN
  4. TYLENOL [Concomitant]
     Active Substance: ACETAMINOPHEN
  5. LOSARTAN POTASSIUM [Concomitant]
     Active Substance: LOSARTAN POTASSIUM
  6. ROSUVASTATIN [Concomitant]
     Active Substance: ROSUVASTATIN
  7. OMEPRAZOLE [Concomitant]
     Active Substance: OMEPRAZOLE

REACTIONS (3)
  - Drug interaction [Unknown]
  - Vision blurred [Unknown]
  - Bone pain [Unknown]
